FAERS Safety Report 9703930 (Version 1)
Quarter: 2013Q4

REPORT INFORMATION
  Report Type: Spontaneous
  Country: US (occurrence: None)
  Receive Date: 20131121
  Receipt Date: 20131121
  Transmission Date: 20140711
  Serious: Yes (Hospitalization)
  Sender: FDA-Public Use
  Company Number: None

PATIENT
  Age: 64 Year
  Sex: Male
  Weight: 105.1 kg

DRUGS (2)
  1. IODIXANOL [Suspect]
     Indication: CATHETERISATION CARDIAC
     Route: 042
     Dates: start: 20131007, end: 20131007
  2. FUROSEMIDE [Suspect]
     Indication: CARDIAC FAILURE CONGESTIVE
     Route: 048
     Dates: start: 20131008

REACTIONS (1)
  - Renal failure acute [None]
